FAERS Safety Report 6599416-7 (Version None)
Quarter: 2010Q1

REPORT INFORMATION
  Report Type: 
  Country: None (occurrence: None)
  Receive Date: 20100224
  Receipt Date: 20100215
  Transmission Date: 20100710
  Serious: Yes (Hospitalization, Other)
  Sender: FDA-Public Use
  Company Number: US-ASTRAZENECA-2010SE06545

PATIENT
  Age: 31664 Day
  Sex: Female
  Weight: 77.3 kg

DRUGS (6)
  1. NEXIUM [Suspect]
     Indication: ANTACID THERAPY
     Route: 048
     Dates: start: 20050101, end: 20090101
  2. PLAVIX [Suspect]
     Indication: CEREBROVASCULAR ACCIDENT
     Route: 048
     Dates: start: 20050101
  3. ZANTAC [Suspect]
     Indication: ANTACID THERAPY
     Route: 065
     Dates: start: 20091128, end: 20091203
  4. ATORVASTATIN CALCIUM [Concomitant]
  5. DETROL [Concomitant]
     Dates: start: 20080101
  6. ASPIRIN [Concomitant]

REACTIONS (11)
  - ANAPHYLACTOID SHOCK [None]
  - CEREBROVASCULAR ACCIDENT [None]
  - COLON CANCER [None]
  - CONFUSIONAL STATE [None]
  - ERYTHEMA [None]
  - GAIT DISTURBANCE [None]
  - INTRACRANIAL ANEURYSM [None]
  - LOSS OF CONSCIOUSNESS [None]
  - LOSS OF CONTROL OF LEGS [None]
  - URTICARIA [None]
  - VOMITING [None]
